FAERS Safety Report 12845077 (Version 1)
Quarter: 2016Q4

REPORT INFORMATION
  Report Type: Spontaneous
  Country: US (occurrence: US)
  Receive Date: 20161013
  Receipt Date: 20161013
  Transmission Date: 20170207
  Serious: Yes (Other)
  Sender: FDA-Public Use
  Company Number: US-SCIEGEN PHARMACEUTICALS INC-2016SCILIT00453

PATIENT
  Age: 40 Year
  Sex: Male

DRUGS (2)
  1. TRIAMCINOLONE [Concomitant]
     Active Substance: TRIAMCINOLONE
     Indication: PSORIASIS
     Dosage: 0.1 %, UNK
     Route: 065
  2. METFORMIN HYDROCHLORIDE TABLETS, USP [Suspect]
     Active Substance: METFORMIN HYDROCHLORIDE
     Indication: DIABETES MELLITUS
     Dosage: UNK
     Route: 065

REACTIONS (16)
  - Purulent discharge [Unknown]
  - Papule [Unknown]
  - Rash pruritic [Recovered/Resolved]
  - Fatigue [Recovering/Resolving]
  - Rash erythematous [Recovered/Resolved]
  - Exfoliative rash [Recovered/Resolved]
  - Skin hyperpigmentation [Unknown]
  - Lymphadenopathy [Recovered/Resolved]
  - Onycholysis [Unknown]
  - Eosinophilia [Recovering/Resolving]
  - Dermatitis psoriasiform [Unknown]
  - Skin haemorrhage [Unknown]
  - Skin plaque [Unknown]
  - Drug reaction with eosinophilia and systemic symptoms [Unknown]
  - Superinfection bacterial [Unknown]
  - Staphylococcal infection [Unknown]
